FAERS Safety Report 9344383 (Version 1)
Quarter: 2013Q2

REPORT INFORMATION
  Report Type: Report from Study
  Country: US (occurrence: US)
  Receive Date: 20130612
  Receipt Date: 20130612
  Transmission Date: 20140414
  Serious: Yes (Other)
  Sender: FDA-Public Use
  Company Number: US-PFIZER INC-2013171084

PATIENT
  Age: 54 Year
  Sex: Female

DRUGS (3)
  1. OXALIPLATIN [Suspect]
     Indication: OVARIAN CANCER
     Dosage: 130 MG/M2, EVERY 3 WEEKS ON DAY 1
     Route: 041
  2. DOCETAXEL [Suspect]
     Indication: OVARIAN CANCER
     Dosage: 60 MG/M2, EVERY 3 WEEKS ON DAY 1
     Route: 041
  3. DEXAMETHASONE [Concomitant]
     Indication: SUPPORTIVE CARE
     Dosage: UNK

REACTIONS (5)
  - Lymphopenia [Unknown]
  - Nausea [Unknown]
  - Vomiting [Unknown]
  - Gastrointestinal toxicity [Unknown]
  - Decreased appetite [Unknown]
